FAERS Safety Report 6990473-2 (Version None)
Quarter: 2010Q3

REPORT INFORMATION
  Report Type: 
  Country: None (occurrence: None)
  Receive Date: 20100916
  Receipt Date: 20100628
  Transmission Date: 20110219
  Serious: Yes (Other)
  Sender: FDA-Public Use
  Company Number: DE-PFIZER INC-2010080058

PATIENT
  Age: 75 Year
  Sex: Female
  Weight: 40 kg

DRUGS (10)
  1. LYRICA [Suspect]
     Dosage: 75 MG, UNK
     Route: 048
  2. OXAZEPAM [Concomitant]
     Dosage: UNK
  3. SULTANOL [Concomitant]
     Dosage: UNK
  4. EUTHYROX [Concomitant]
     Dosage: UNK
  5. NEXIUM [Concomitant]
     Dosage: UNK
  6. CLEXANE [Concomitant]
     Dosage: UNK
  7. CONCOR [Concomitant]
     Dosage: UNK
  8. DURAGESIC-100 [Concomitant]
     Dosage: UNK
  9. GENTAMICIN [Concomitant]
     Dosage: UNK
  10. PIPERACILLIN AND TAZOBACTAM [Concomitant]
     Dosage: UNK

REACTIONS (4)
  - DEPRESSED LEVEL OF CONSCIOUSNESS [None]
  - DRY EYE [None]
  - HYPERSOMNIA [None]
  - HYPOTENSION [None]
